FAERS Safety Report 5368598-7 (Version None)
Quarter: 2007Q2

REPORT INFORMATION
  Report Type: 
  Country: None (occurrence: None)
  Receive Date: 20070625
  Receipt Date: 20070619
  Transmission Date: 20071010
  Serious: Yes (Hospitalization)
  Sender: FDA-Public Use
  Company Number: HQWYE704120JUN07

PATIENT
  Age: 27 Year
  Sex: Female

DRUGS (2)
  1. ANGE-28 [Suspect]
     Indication: CONTRACEPTION
     Route: 048
     Dates: start: 20070101
  2. ANGE-28 [Suspect]
     Indication: DYSMENORRHOEA

REACTIONS (2)
  - ANAEMIA [None]
  - METRORRHAGIA [None]
